FAERS Safety Report 9723014 (Version 1)
Quarter: 2013Q4

REPORT INFORMATION
  Report Type: Spontaneous
  Country: US (occurrence: None)
  Receive Date: 20131126
  Receipt Date: 20131126
  Transmission Date: 20140711
  Serious: Yes (Other)
  Sender: FDA-Public Use
  Company Number: 2013-US-003484

PATIENT
  Age: 45 Year
  Sex: Female
  Weight: 97.5 kg

DRUGS (1)
  1. XYREM (SODIUM OXYBAGTE) ORAL SOLUTION, 500MG/ML [Suspect]
     Indication: NARCOLEPSY
     Dosage: 2.25 G, BID, ORAL
     Route: 048
     Dates: start: 200904

REACTIONS (3)
  - Seizure like phenomena [None]
  - Belligerence [None]
  - Incoherent [None]
